FAERS Safety Report 6747117-4 (Version None)
Quarter: 2010Q2

REPORT INFORMATION
  Report Type: 
  Country: None (occurrence: None)
  Receive Date: 20100528
  Receipt Date: 20100520
  Transmission Date: 20101027
  Serious: Yes (Other)
  Sender: FDA-Public Use
  Company Number: BR-PFIZER INC-2010002483

PATIENT
  Age: 33 Year
  Sex: Female
  Weight: 74 kg

DRUGS (1)
  1. FRAGMIN [Suspect]
     Indication: ASSISTED FERTILISATION
     Dosage: 5000 IU, 1X/DAY
     Route: 058
     Dates: start: 20090825, end: 20100423

REACTIONS (1)
  - GESTATIONAL DIABETES [None]
